FAERS Safety Report 5581253-3 (Version None)
Quarter: 2007Q4

REPORT INFORMATION
  Report Type: 
  Country: None (occurrence: None)
  Receive Date: 20071130
  Receipt Date: 20070628
  Transmission Date: 20080405
  Serious: No
  Sender: FDA-Public Use
  Company Number: US200707001636

PATIENT
  Age: 54 Year
  Sex: Female

DRUGS (8)
  1. BYETTA [Suspect]
     Indication: TYPE 2 DIABETES MELLITUS
     Dosage: 5 UG, 2/D, SUBCUTANEOUS
     Route: 058
     Dates: start: 20060701, end: 20060701
  2. LANTUS [Concomitant]
  3. HUMALOG [Concomitant]
  4. ZANTAC 150 [Concomitant]
  5. MEGACE [Concomitant]
  6. HYDROCORTISONE (HYDROCORTISONE) [Concomitant]
  7. FLORINEF [Concomitant]
  8. ASPIRIN /USA/ (ACETYLSALICYLIC ACID) [Concomitant]

REACTIONS (8)
  - ASTHENIA [None]
  - BLOOD GLUCOSE FLUCTUATION [None]
  - DECREASED APPETITE [None]
  - DEHYDRATION [None]
  - NAUSEA [None]
  - STRESS [None]
  - VOMITING [None]
  - WEIGHT DECREASED [None]
